FAERS Safety Report 17716095 (Version 1)
Quarter: 2020Q2

REPORT INFORMATION
  Report Type: Report from Study
  Country: US (occurrence: US)
  Receive Date: 20200428
  Receipt Date: 20200428
  Transmission Date: 20200714
  Serious: Yes (Other)
  Sender: FDA-Public Use
  Company Number: US-OCTA-ONORM01320US

PATIENT
  Sex: Female

DRUGS (1)
  1. CUTAQUIG [Suspect]
     Active Substance: HUMAN IMMUNOGLOBULIN G
     Indication: PRODUCT USED FOR UNKNOWN INDICATION
     Route: 058
     Dates: start: 2019

REACTIONS (15)
  - Malaise [Unknown]
  - Injection site pain [Recovered/Resolved]
  - Pain [Unknown]
  - Influenza like illness [Unknown]
  - Condition aggravated [Unknown]
  - Asthenia [Unknown]
  - Joint stiffness [Unknown]
  - Arthralgia [Unknown]
  - Migraine [Unknown]
  - Feeling abnormal [Unknown]
  - Dizziness [Unknown]
  - Neck pain [Unknown]
  - Photophobia [Unknown]
  - Nausea [Unknown]
  - Hyperacusis [Unknown]

NARRATIVE: CASE EVENT DATE: 2019
